FAERS Safety Report 6489388-8 (Version None)
Quarter: 2009Q4

REPORT INFORMATION
  Report Type: 
  Country: None (occurrence: None)
  Receive Date: 20091210
  Receipt Date: 20091013
  Transmission Date: 20100525
  Serious: No
  Sender: FDA-Public Use
  Company Number: US-AMGEN-KDL369165

PATIENT
  Sex: Female

DRUGS (9)
  1. ENBREL [Suspect]
     Indication: PSORIASIS
     Route: 058
     Dates: start: 20071108
  2. LANTUS [Concomitant]
  3. HUMULIN R [Concomitant]
  4. AVAPRO [Concomitant]
  5. VASOTEC [Concomitant]
  6. PRAVACHOL [Concomitant]
  7. XANAX [Concomitant]
  8. ACIPHEX [Concomitant]
  9. MICARDIS [Concomitant]

REACTIONS (1)
  - URINARY INCONTINENCE [None]
